FAERS Safety Report 9672260 (Version 1)
Quarter: 2013Q4

REPORT INFORMATION
  Report Type: Spontaneous
  Country: AR (occurrence: AR)
  Receive Date: 20131106
  Receipt Date: 20131106
  Transmission Date: 20140711
  Serious: Yes (Hospitalization)
  Sender: FDA-Public Use
  Company Number: PHHY2013AR125903

PATIENT
  Sex: Female

DRUGS (3)
  1. TEGRETOL [Suspect]
     Indication: NERVOUS SYSTEM DISORDER
     Dosage: 3 DF,/DAY
     Route: 048
     Dates: start: 201301
  2. TEGRETOL [Suspect]
     Indication: CONVULSION
  3. TEGRETOL [Suspect]
     Indication: HEADACHE

REACTIONS (6)
  - Dehydration [Recovered/Resolved]
  - Amnesia [Recovered/Resolved]
  - Hypersensitivity [Recovered/Resolved]
  - Oedema [Recovered/Resolved]
  - Fluid retention [Recovered/Resolved]
  - Vomiting [Recovered/Resolved]
